FAERS Safety Report 7507597 (Version 5)
Quarter: 2018Q4

REPORT INFORMATION
  Report Type: Spontaneous
  Country: FR (occurrence: FR)
  Receive Date: 20100729
  Receipt Date: 20181229
  Transmission Date: 20190205
  Serious: Yes (Hospitalization)
  Sender: FDA-Public Use
  Company Number: FR-TEVA-242435ISR

PATIENT
  Age: 85 Year
  Sex: Male

DRUGS (7)
  1. COMTAN 200 MG [Concomitant]
     Indication: PARKINSON^S DISEASE
     Dosage: 1 DOSAGE FORMS DAILY;
     Route: 048
     Dates: end: 20100716
  2. REQUIP LP 8MG [Concomitant]
     Dosage: 1 DOSAGE FORMS DAILY;
     Route: 048
     Dates: start: 20100721
  3. AZILECT [Suspect]
     Active Substance: RASAGILINE MESYLATE
     Indication: PARKINSON^S DISEASE
     Dosage: 1 DOSAGE FORMS DAILY;
     Route: 048
     Dates: start: 20100706, end: 20100716
  4. REQUIP LP 8MG [Concomitant]
     Indication: PARKINSON^S DISEASE
     Dosage: 1 DOSAGE FORMS DAILY;
     Route: 048
     Dates: end: 20100716
  5. MODOPAR LP 100MG/25MG [Concomitant]
     Indication: PARKINSON^S DISEASE
     Dosage: 6 DOSAGE FORMS DAILY; 100MG/25MG
     Route: 048
  6. COMTAN 200 MG [Concomitant]
     Dosage: 6 DOSAGE FORMS DAILY;
     Route: 048
     Dates: start: 20100721
  7. DIFFU K [Concomitant]
     Active Substance: POTASSIUM CHLORIDE
     Dosage: 3 DOSAGE FORMS DAILY;
     Route: 048

REACTIONS (3)
  - Intracranial pressure increased [Recovered/Resolved]
  - Papilloedema [Recovering/Resolving]
  - Visual acuity reduced [Recovered/Resolved]

NARRATIVE: CASE EVENT DATE: 20100709
